FAERS Safety Report 10357729 (Version 1)
Quarter: 2014Q3

REPORT INFORMATION
  Report Type: Spontaneous
  Country: SA (occurrence: None)
  Receive Date: 20140730
  Receipt Date: 20140730
  Transmission Date: 20150326
  Serious: No
  Sender: FDA-Public Use
  Company Number: CC14-1143

PATIENT
  Age: 42 Year
  Sex: Male

DRUGS (1)
  1. IMIQUIMOD. [Suspect]
     Active Substance: IMIQUIMOD
     Indication: PRODUCT USED FOR UNKNOWN INDICATION
     Dosage: 5 DAYS PER WEEKS  FOR 10 WEEKS

REACTIONS (2)
  - Refusal of treatment by patient [None]
  - Bowen^s disease [None]
